FAERS Safety Report 19772775 (Version 1)
Quarter: 2021Q3

REPORT INFORMATION
  Report Type: Spontaneous
  Country: US (occurrence: US)
  Receive Date: 20210901
  Receipt Date: 20210901
  Transmission Date: 20211014
  Serious: Yes (Death)
  Sender: FDA-Public Use
  Company Number: None

PATIENT
  Sex: Female
  Weight: 38.25 kg

DRUGS (17)
  1. DEFERASIROX. [Suspect]
     Active Substance: DEFERASIROX
     Indication: HAEMOCHROMATOSIS
     Route: 048
  2. DEFERASIROX. [Suspect]
     Active Substance: DEFERASIROX
     Indication: HAEMOCHROMATOSIS
     Route: 048
  3. LEVOTHYROXINE. [Concomitant]
     Active Substance: LEVOTHYROXINE
  4. BUSPIRONE [Concomitant]
     Active Substance: BUSPIRONE HYDROCHLORIDE
  5. MULTIVITAMIN [Concomitant]
     Active Substance: VITAMINS
  6. TYLENOL [Concomitant]
     Active Substance: ACETAMINOPHEN
  7. HYDROXYZINE [Concomitant]
     Active Substance: HYDROXYZINE HYDROCHLORIDE
  8. LUNESTA [Concomitant]
     Active Substance: ESZOPICLONE
  9. MIRENA [Concomitant]
     Active Substance: LEVONORGESTREL
  10. VITAMIN D3 [Concomitant]
     Active Substance: CHOLECALCIFEROL
  11. BD INSULIN [Concomitant]
  12. HUMALOG KWIKPEN [Concomitant]
     Active Substance: INSULIN LISPRO
  13. ACYCLOVIR. [Concomitant]
     Active Substance: ACYCLOVIR
  14. HYDROXYCHLOROQUINE [Concomitant]
     Active Substance: HYDROXYCHLOROQUINE
  15. PREDNISONE. [Concomitant]
     Active Substance: PREDNISONE
  16. TOUJEO [Concomitant]
     Active Substance: INSULIN GLARGINE
  17. MIRTAZAPINE. [Concomitant]
     Active Substance: MIRTAZAPINE

REACTIONS (1)
  - Death [None]
